FAERS Safety Report 9406972 (Version 1)
Quarter: 2013Q3

REPORT INFORMATION
  Report Type: Spontaneous
  Country: US (occurrence: US)
  Receive Date: 20130718
  Receipt Date: 20130718
  Transmission Date: 20140515
  Serious: No
  Sender: FDA-Public Use
  Company Number: US-PFIZER INC-2013207796

PATIENT
  Age: 55 Year
  Sex: Female

DRUGS (1)
  1. GABAPENTIN [Suspect]
     Dosage: 300 MG, 1X/DAY (HS)

REACTIONS (6)
  - Drug hypersensitivity [Unknown]
  - Headache [Unknown]
  - Somnolence [Unknown]
  - Confusional state [Unknown]
  - Insomnia [Unknown]
  - Asthenia [Unknown]
